FAERS Safety Report 19912209 (Version 1)
Quarter: 2021Q4

REPORT INFORMATION
  Report Type: Spontaneous
  Country: US (occurrence: US)
  Receive Date: 20211002
  Receipt Date: 20211002
  Transmission Date: 20220304
  Serious: Yes (Other)
  Sender: FDA-Public Use
  Company Number: None

PATIENT
  Age: 57 Year
  Sex: Female
  Weight: 54.9 kg

DRUGS (21)
  1. TERCONAZOLE [Suspect]
     Active Substance: TERCONAZOLE
     Indication: Fungal infection
     Dosage: ?          QUANTITY:1 GRAMS;
     Route: 067
     Dates: start: 20210928, end: 20210930
  2. LEVOTHYROXINE [Concomitant]
     Active Substance: LEVOTHYROXINE
  3. LIOTHYRONINE [Concomitant]
     Active Substance: LIOTHYRONINE
  4. ESTRADIOL [Concomitant]
     Active Substance: ESTRADIOL
  5. PROGESTERONE [Concomitant]
     Active Substance: PROGESTERONE
  6. SERTRALINE [Concomitant]
     Active Substance: SERTRALINE HYDROCHLORIDE
  7. ZINC [Concomitant]
     Active Substance: ZINC
  8. PROBIOTICS NOS [Concomitant]
     Active Substance: PROBIOTICS NOS
  9. SELENIUM [Concomitant]
     Active Substance: SELENIUM
  10. GLUCOSAMINE AN CHONDRITIN [Concomitant]
  11. VITAMIN E [Concomitant]
     Active Substance: .ALPHA.-TOCOPHEROL
  12. SUPER COMPLEX B [Concomitant]
  13. HERBALS\TURMERIC [Concomitant]
     Active Substance: HERBALS\TURMERIC
  14. MAGNESIUM CITRATE [Concomitant]
     Active Substance: MAGNESIUM CITRATE
  15. CALCIUM [Concomitant]
     Active Substance: CALCIUM
  16. CRANBERRY [Concomitant]
     Active Substance: CRANBERRY
  17. BIOTIN [Concomitant]
     Active Substance: BIOTIN
  18. POWER C [Concomitant]
  19. VITAMIN D3 [Concomitant]
     Active Substance: CHOLECALCIFEROL
  20. VITAMIN B12 [Concomitant]
     Active Substance: CYANOCOBALAMIN
  21. VITAMINS [Concomitant]
     Active Substance: VITAMINS

REACTIONS (2)
  - Abdominal pain upper [None]
  - Abdominal pain [None]

NARRATIVE: CASE EVENT DATE: 20210928
